FAERS Safety Report 7471742-9 (Version None)
Quarter: 2011Q2

REPORT INFORMATION
  Report Type: 
  Country: None (occurrence: None)
  Receive Date: 20110511
  Receipt Date: 20100630
  Transmission Date: 20111010
  Serious: No
  Sender: FDA-Public Use
  Company Number: A0850717A

PATIENT
  Age: 40 Year
  Sex: Female

DRUGS (3)
  1. HERCEPTIN [Suspect]
     Route: 065
  2. ZOMETA [Suspect]
     Route: 065
  3. TYKERB [Suspect]
     Dosage: 1000MG PER DAY
     Route: 048
     Dates: start: 20100203, end: 20100602

REACTIONS (7)
  - NAUSEA [None]
  - DIARRHOEA [None]
  - PYREXIA [None]
  - VOMITING [None]
  - DISEASE PROGRESSION [None]
  - DECREASED APPETITE [None]
  - WEIGHT DECREASED [None]
